FAERS Safety Report 10066141 (Version 4)
Quarter: 2014Q3

REPORT INFORMATION
  Report Type: Spontaneous
  Country: AU (occurrence: AU)
  Receive Date: 20140408
  Receipt Date: 20140909
  Transmission Date: 20150326
  Serious: Yes (Other)
  Sender: FDA-Public Use
  Company Number: ALCN2014AU002133

PATIENT
  Sex: Male
  Weight: 72 kg

DRUGS (9)
  1. BETADINE [Concomitant]
     Active Substance: POVIDONE-IODINE
     Dosage: 1 DF, UNK
     Route: 047
     Dates: start: 20140324, end: 20140324
  2. ASPIRIN. [Concomitant]
     Active Substance: ASPIRIN
     Dosage: 1 UNK, UNK
     Route: 048
  3. AZOPT [Suspect]
     Active Substance: BRINZOLAMIDE
     Indication: GLAUCOMA
     Dosage: 1 UNK, UNK
     Route: 047
  4. BSS [Suspect]
     Active Substance: CALCIUM CHLORIDE\MAGNESIUM CHLORIDE\POTASSIUM CHLORIDE\SODIUM ACETATE\SODIUM CHLORIDE\SODIUM CITRATE
     Dosage: 500 ML, UNK
     Route: 031
     Dates: start: 20140324, end: 20140324
  5. RAMIPRIL. [Concomitant]
     Active Substance: RAMIPRIL
     Dosage: 1 DF, UNK
  6. ASPIRIN. [Concomitant]
     Active Substance: ASPIRIN
     Dosage: UNK
     Route: 048
  7. EPINEPHRINE. [Concomitant]
     Active Substance: EPINEPHRINE
     Dosage: 1 DF, UNK
     Route: 047
     Dates: start: 20140324, end: 20140324
  8. ZOTON [Concomitant]
     Active Substance: LANSOPRAZOLE
     Dosage: 1 DF, UNK
  9. XALCOM [Concomitant]
     Active Substance: LATANOPROST\TIMOLOL
     Dosage: 1 DF, UNK
     Route: 047

REACTIONS (2)
  - Off label use [Unknown]
  - Toxic anterior segment syndrome [Recovering/Resolving]
